FAERS Safety Report 6986317-5 (Version None)
Quarter: 2010Q3

REPORT INFORMATION
  Report Type: 
  Country: None (occurrence: None)
  Receive Date: 20100915
  Receipt Date: 20090623
  Transmission Date: 20110219
  Serious: No
  Sender: FDA-Public Use
  Company Number: US-WYE-H09898609

PATIENT
  Sex: Female
  Weight: 47.67 kg

DRUGS (5)
  1. PRISTIQ [Suspect]
     Indication: DEPRESSION
     Route: 048
     Dates: start: 20090619
  2. XANAX [Concomitant]
  3. ARIPIPRAZOLE [Suspect]
  4. OXYCONTIN [Concomitant]
  5. DARVON [Concomitant]

REACTIONS (5)
  - DECREASED APPETITE [None]
  - HEADACHE [None]
  - NAUSEA [None]
  - SUDDEN ONSET OF SLEEP [None]
  - TREMOR [None]
